FAERS Safety Report 15475169 (Version 1)
Quarter: 2018Q4

REPORT INFORMATION
  Report Type: Spontaneous
  Country: FR (occurrence: FR)
  Receive Date: 20181008
  Receipt Date: 20181008
  Transmission Date: 20190205
  Serious: Yes (Disabling, Other)
  Sender: FDA-Public Use
  Company Number: FR-MYLANLABS-2018M1073938

PATIENT
  Age: 47 Year
  Sex: Female
  Weight: 92 kg

DRUGS (6)
  1. ANDROCUR 50 MG, COMPRIM? [Suspect]
     Active Substance: CYPROTERONE ACETATE
     Indication: UTERINE LEIOMYOMA
     Dosage: 25 MG, QD
     Route: 048
     Dates: start: 20050401, end: 20170308
  2. ASPEGIC ADULTES 1000 MG, POUDRE POUR SOLUTION BUVABLE EN SACHET-DOSE [Concomitant]
     Active Substance: ASPIRIN DL-LYSINE
     Indication: ANALGESIC INTERVENTION SUPPORTIVE THERAPY
     Dosage: 1000 MG, UNK
     Route: 048
  3. OROMONE [Suspect]
     Active Substance: ESTRADIOL
     Indication: FIBROMATOSIS
     Dosage: 1 MG, QD
     Route: 048
     Dates: start: 20050401, end: 20170308
  4. LEVOTHYROX 100 MICROGRAMMES, COMPRIM? S?CABLE [Concomitant]
     Active Substance: LEVOTHYROXINE SODIUM
     Indication: HYPOTHYROIDISM
     Dosage: 100 ?G, QD
     Route: 048
  5. DAFALGAN [Concomitant]
     Active Substance: ACETAMINOPHEN
     Indication: ANALGESIC INTERVENTION SUPPORTIVE THERAPY
     Dosage: 1000 MG, UNK
     Route: 048
  6. ZYPREXA [Concomitant]
     Active Substance: OLANZAPINE
     Indication: BIPOLAR DISORDER
     Dosage: 5 MG, QD
     Route: 048

REACTIONS (1)
  - Meningioma benign [Recovered/Resolved with Sequelae]

NARRATIVE: CASE EVENT DATE: 20170301
